FAERS Safety Report 4827424-2 (Version None)
Quarter: 2005Q4

REPORT INFORMATION
  Report Type: 
  Country: None (occurrence: None)
  Receive Date: 20051110
  Receipt Date: 20051025
  Transmission Date: 20060501
  Serious: Yes (Death)
  Sender: FDA-Public Use
  Company Number: DSA_27328_2005

PATIENT
  Age: 76 Year
  Sex: Male

DRUGS (6)
  1. ENALAPRIL MALEATE [Suspect]
     Indication: CARDIAC FAILURE
     Dosage: 20 MG QD PO
     Route: 048
  2. LIPITOR [Concomitant]
  3. DIGITOXIN TAB [Concomitant]
  4. FUROSEMIDE [Concomitant]
  5. SOTALOL HCL [Concomitant]
  6. MAREVAN [Concomitant]

REACTIONS (8)
  - BASE EXCESS INCREASED [None]
  - BLOOD BICARBONATE DECREASED [None]
  - BLOOD PH DECREASED [None]
  - BLOOD SODIUM DECREASED [None]
  - CARDIAC ARREST [None]
  - ELECTROLYTE IMBALANCE [None]
  - HYPERKALAEMIA [None]
  - RENAL FAILURE [None]
